FAERS Safety Report 7597272-1 (Version None)
Quarter: 2011Q3

REPORT INFORMATION
  Report Type: 
  Country: None (occurrence: None)
  Receive Date: 20110708
  Receipt Date: 20110203
  Transmission Date: 20111222
  Serious: No
  Sender: FDA-Public Use
  Company Number: US-GLAXOSMITHKLINE-A0911686A

PATIENT
  Age: 48 Year
  Sex: Male

DRUGS (2)
  1. FLOVENT [Suspect]
     Indication: OESOPHAGITIS
     Dosage: 1SPR TWICE PER DAY
     Route: 048
     Dates: start: 20101201
  2. TYLENOL W/ CODEINE NO. 3 [Concomitant]
     Indication: THYROID DISORDER

REACTIONS (3)
  - GASTROINTESTINAL PAIN [None]
  - BACK PAIN [None]
  - INCORRECT ROUTE OF DRUG ADMINISTRATION [None]
